FAERS Safety Report 8757072 (Version 2)
Quarter: 2012Q4

REPORT INFORMATION
  Report Type: 
  Country: BR (occurrence: BR)
  Receive Date: 20120828
  Receipt Date: 20120905
  Transmission Date: 20130627
  Serious: Yes (Other)
  Sender: FDA-Public Use
  Company Number: BR-PFIZER INC-2012206255

PATIENT
  Age: 47 Year
  Sex: Female
  Weight: 113 kg

DRUGS (13)
  1. LIPITOR [Suspect]
     Indication: CORONARY ARTERY OCCLUSION
     Dosage: 1 tablet of 20 mg, 1x/day
     Route: 048
     Dates: start: 2011
  2. ASPIRINA [Concomitant]
     Indication: CORONARY ARTERY OCCLUSION
     Dosage: 100 mg, 1x/day
  3. MONOCORDIL [Concomitant]
     Indication: CORONARY ARTERY OCCLUSION
     Dosage: UNK, every 12 hours
  4. LOSARTAN [Concomitant]
     Indication: HYPERTENSION
     Dosage: 2 tablets of 50 mg, daily
  5. METFORMIN HYDROCHLORIDE [Concomitant]
     Indication: DIABETES MELLITUS
     Dosage: 2 tablets of 150 mg, 1x/day
  6. METFORMIN HYDROCHLORIDE [Concomitant]
     Dosage: 850 mg, UNK
  7. OMEPRAZOL [Concomitant]
     Indication: GASTRIC DISORDER
     Dosage: UNK
  8. OMEPRAZOL [Concomitant]
     Indication: GASTRITIS
  9. PREDSIM [Concomitant]
     Indication: SYSTEMIC LUPUS ERYTHEMATOSUS
     Dosage: UNK
  10. SERTRALINE [Concomitant]
     Indication: DEPRESSION
     Dosage: 100 mg, 1x/day
  11. REDUCLIM [Concomitant]
     Indication: MENOPAUSE
     Dosage: 2.5 g, UNK
  12. REDUCLIM [Concomitant]
     Dosage: 2.25 mg, UNK
  13. DEPAKENE [Concomitant]
     Indication: EPILEPSY
     Dosage: UNK, 2x/day

REACTIONS (3)
  - Diabetes mellitus [Unknown]
  - Pain in extremity [Unknown]
  - Hypoaesthesia [Unknown]
